FAERS Safety Report 6233971-1 (Version None)
Quarter: 2009Q2

REPORT INFORMATION
  Report Type: 
  Country: None (occurrence: None)
  Receive Date: 20090618
  Receipt Date: 20090616
  Transmission Date: 20091009
  Serious: Yes (Hospitalization)
  Sender: FDA-Public Use
  Company Number: JP-BAYER-200911855BYL

PATIENT
  Age: 59 Year
  Sex: Male
  Weight: 72 kg

DRUGS (7)
  1. CIPROXAN [Suspect]
     Indication: PNEUMONIA
     Dosage: TOTAL DAILY DOSE: 400 MG
     Route: 048
     Dates: start: 20080526, end: 20080530
  2. WARFARIN SODIUM [Interacting]
     Indication: ATRIAL FIBRILLATION
     Dosage: TOTAL DAILY DOSE: 1.5 MG
     Route: 048
  3. GARENOXACIN MESILATE HYDRATE [Concomitant]
     Route: 048
     Dates: start: 20080604
  4. UNASYN [Concomitant]
     Indication: PNEUMONIA
     Dosage: TOTAL DAILY DOSE: 6 G  UNIT DOSE: 3 G
     Route: 041
     Dates: start: 20080605, end: 20080608
  5. PROTECADIN [Concomitant]
     Indication: GASTRIC ULCER
     Dosage: TOTAL DAILY DOSE: 20 MG  UNIT DOSE: 10 MG
     Route: 048
  6. URSO 250 [Concomitant]
     Indication: HEPATIC FUNCTION ABNORMAL
     Dosage: TOTAL DAILY DOSE: 300 MG  UNIT DOSE: 100 MG
     Route: 048
  7. BIOFERMIN R [Concomitant]
     Indication: DIARRHOEA
     Dosage: TOTAL DAILY DOSE: 3 G  UNIT DOSE: 1 G
     Route: 048

REACTIONS (2)
  - HAEMOPTYSIS [None]
  - INTERNATIONAL NORMALISED RATIO INCREASED [None]
